FAERS Safety Report 10244625 (Version 1)
Quarter: 2014Q2

REPORT INFORMATION
  Report Type: Report from Study
  Country: VE (occurrence: VE)
  Receive Date: 20140618
  Receipt Date: 20140618
  Transmission Date: 20141212
  Serious: Yes (Death)
  Sender: FDA-Public Use
  Company Number: VE-SA-2014SA079665

PATIENT
  Age: 67 Year
  Sex: Female

DRUGS (2)
  1. PLAVIX [Suspect]
     Indication: PULMONARY EMBOLISM
     Route: 048
     Dates: end: 201312
  2. DAFLON [Concomitant]

REACTIONS (1)
  - Bladder cancer [Fatal]
